FAERS Safety Report 8993145 (Version 1)
Quarter: 2013Q1

REPORT INFORMATION
  Report Type: Report from Study
  Country: DE (occurrence: DE)
  Receive Date: 20130102
  Receipt Date: 20130102
  Transmission Date: 20140127
  Serious: Yes (Hospitalization)
  Sender: FDA-Public Use
  Company Number: DE-ROCHE-1175627

PATIENT
  Sex: Male
  Weight: 79 kg

DRUGS (5)
  1. ALTEPLASE [Suspect]
     Indication: PERIPHERAL ARTERIAL OCCLUSIVE DISEASE
     Dosage: 2.5 MG/H
     Route: 013
     Dates: start: 19931215, end: 19931215
  2. EUGLUCON [Concomitant]
     Indication: DIABETES MELLITUS
     Route: 048
  3. HARZOL [Concomitant]
     Indication: BENIGN PROSTATIC HYPERPLASIA
     Route: 048
  4. GLUCOPHAGE RETARD [Concomitant]
     Indication: DIABETES MELLITUS
     Route: 048
  5. MINIASAL [Concomitant]
     Indication: PERIPHERAL ARTERIAL OCCLUSIVE DISEASE
     Route: 048

REACTIONS (1)
  - Intermittent claudication [Recovered/Resolved]
